FAERS Safety Report 10647911 (Version 1)
Quarter: 2014Q4

REPORT INFORMATION
  Report Type: Spontaneous
  Country: US (occurrence: None)
  Receive Date: 20141211
  Receipt Date: 20141211
  Transmission Date: 20150529
  Serious: Yes (Death)
  Sender: FDA-Public Use
  Company Number: None

PATIENT
  Age: 82 Year
  Sex: Male

DRUGS (1)
  1. ZYTIGA [Suspect]
     Active Substance: ABIRATERONE ACETATE
     Indication: NEOPLASM MALIGNANT
     Dosage: 4 TABLETS, QD, ORAL
     Route: 048
     Dates: start: 20140520, end: 20141130

REACTIONS (3)
  - Pneumonia [None]
  - Renal failure [None]
  - Malignant neoplasm progression [None]

NARRATIVE: CASE EVENT DATE: 20141130
